FAERS Safety Report 8046112-5 (Version None)
Quarter: 2012Q1

REPORT INFORMATION
  Report Type: 
  Country: None (occurrence: None)
  Receive Date: 20120113
  Receipt Date: 20120110
  Transmission Date: 20120608
  Serious: No
  Sender: FDA-Public Use
  Company Number: US-PFIZER INC-2012007600

PATIENT
  Sex: Female

DRUGS (1)
  1. FLECTOR [Suspect]
     Dosage: UNK

REACTIONS (5)
  - PARAESTHESIA [None]
  - EYE IRRITATION [None]
  - PARAESTHESIA ORAL [None]
  - PRURITUS [None]
  - LUNG DISORDER [None]
